FAERS Safety Report 9237256 (Version 1)
Quarter: 2013Q2

REPORT INFORMATION
  Report Type: Report from Study
  Country: US (occurrence: US)
  Receive Date: 20130417
  Receipt Date: 20130417
  Transmission Date: 20140414
  Serious: Yes (Hospitalization, Other)
  Sender: FDA-Public Use
  Company Number: US-ABBOTT-13P-163-1074720-00

PATIENT
  Age: 41 Year
  Sex: Female
  Weight: 63.56 kg

DRUGS (11)
  1. HUMIRA [Suspect]
     Indication: ANKYLOSING SPONDYLITIS
     Dates: start: 2006, end: 201104
  2. HUMIRA [Suspect]
     Dates: start: 201110
  3. KEPPRA [Suspect]
     Indication: CEREBROVASCULAR ACCIDENT
  4. UNKNOWN [Suspect]
     Indication: PRODUCT USED FOR UNKNOWN INDICATION
  5. LAMICTAL [Concomitant]
     Indication: CONVULSION
  6. LAMICTAL [Concomitant]
     Indication: PROPHYLAXIS
  7. ASPIRIN [Concomitant]
     Indication: PRODUCT USED FOR UNKNOWN INDICATION
     Dosage: ENTERIC COATED
  8. SERTRALINE [Concomitant]
     Indication: PRODUCT USED FOR UNKNOWN INDICATION
  9. LORAZEPAM [Concomitant]
     Indication: PRODUCT USED FOR UNKNOWN INDICATION
  10. MULTIVITAMIN [Concomitant]
     Indication: PRODUCT USED FOR UNKNOWN INDICATION
  11. UNKNOWN FERTILITY MEDICATION [Concomitant]
     Indication: PRODUCT USED FOR UNKNOWN INDICATION

REACTIONS (7)
  - Convulsion [Unknown]
  - Ischaemic stroke [Recovering/Resolving]
  - Brain oedema [Unknown]
  - Speech disorder [Recovering/Resolving]
  - Muscular weakness [Recovering/Resolving]
  - Diarrhoea [Unknown]
  - Dehydration [Unknown]
